FAERS Safety Report 23257715 (Version 1)
Quarter: 2023Q4

REPORT INFORMATION
  Report Type: Spontaneous
  Country: US (occurrence: US)
  Receive Date: 20231204
  Receipt Date: 20231204
  Transmission Date: 20240109
  Serious: Yes (Death, Hospitalization)
  Sender: FDA-Public Use
  Company Number: US-MYLANLABS-2023M1127148

PATIENT
  Age: 38 Year
  Sex: Male

DRUGS (1)
  1. LEVOTHYROXINE [Suspect]
     Active Substance: LEVOTHYROXINE
     Indication: Decompensated hypothyroidism
     Dosage: 100 MILLIGRAM
     Route: 042

REACTIONS (1)
  - Drug ineffective [Fatal]
